FAERS Safety Report 6678799-3 (Version None)
Quarter: 2010Q2

REPORT INFORMATION
  Report Type: 
  Country: None (occurrence: None)
  Receive Date: 20100413
  Receipt Date: 20100401
  Transmission Date: 20101027
  Serious: Yes (Hospitalization)
  Sender: FDA-Public Use
  Company Number: JP-PFIZER INC-2010044364

PATIENT
  Age: 58 Year
  Sex: Male

DRUGS (1)
  1. SEIBULE [Suspect]
     Indication: DIABETES MELLITUS
     Route: 048

REACTIONS (1)
  - PNEUMATOSIS INTESTINALIS [None]
